FAERS Safety Report 5682047-0 (Version None)
Quarter: 2008Q1

REPORT INFORMATION
  Report Type: 
  Country: None (occurrence: None)
  Receive Date: 20080327
  Receipt Date: 20070518
  Transmission Date: 20080703
  Serious: No
  Sender: FDA-Public Use
  Company Number: US-BAYER-US-2007-012699

PATIENT
  Age: 26 Year
  Sex: Female
  Weight: 79 kg

DRUGS (3)
  1. MIRENA [Suspect]
     Indication: CONTRACEPTION
     Route: 015
     Dates: start: 20070305
  2. ACYCLOVIR [Concomitant]
     Dosage: UNIT DOSE: 400 MG
     Route: 048
  3. EFEXOR /USA/ [Concomitant]
     Route: 048
     Dates: end: 20070409

REACTIONS (6)
  - ANTEPARTUM HAEMORRHAGE [None]
  - COMPLICATION OF DEVICE REMOVAL [None]
  - DRUG EXPOSURE DURING PREGNANCY [None]
  - MEDICATION ERROR [None]
  - NAUSEA [None]
  - VOMITING [None]
